FAERS Safety Report 24373296 (Version 1)
Quarter: 2024Q3

REPORT INFORMATION
  Report Type: Report from Study
  Country: US (occurrence: US)
  Receive Date: 20240927
  Receipt Date: 20240927
  Transmission Date: 20241017
  Serious: Yes (Other)
  Sender: ABBVIE
  Company Number: US-ABBVIE-5937178

PATIENT
  Sex: Female

DRUGS (2)
  1. IMBRUVICA [Suspect]
     Active Substance: IBRUTINIB
     Indication: Follicular lymphoma
     Route: 048
  2. IMBRUVICA [Suspect]
     Active Substance: IBRUTINIB
     Indication: Follicular lymphoma
     Route: 048
     Dates: start: 2024

REACTIONS (7)
  - Renal neoplasm [Unknown]
  - Constipation [Recovered/Resolved]
  - Pruritus [Recovered/Resolved]
  - Night sweats [Unknown]
  - Heart rate increased [Recovered/Resolved]
  - Sleep apnoea syndrome [Unknown]
  - Oral infection [Recovered/Resolved]
